FAERS Safety Report 6538076-8 (Version None)
Quarter: 2010Q1

REPORT INFORMATION
  Report Type: 
  Country: None (occurrence: None)
  Receive Date: 20100114
  Receipt Date: 20100111
  Transmission Date: 20100710
  Serious: Yes (Life-Threatening, Hospitalization, Other)
  Sender: FDA-Public Use
  Company Number: GB-AMGEN-UK331876

PATIENT
  Sex: Male
  Weight: 15 kg

DRUGS (15)
  1. MIMPARA [Suspect]
     Indication: HYPERPARATHYROIDISM SECONDARY
     Route: 048
     Dates: start: 20090113, end: 20090130
  2. FOLIC ACID [Concomitant]
     Route: 048
     Dates: start: 20080414
  3. DOMPERIDONE [Concomitant]
     Route: 048
     Dates: start: 20080414
  4. HYDROXYZINE [Concomitant]
     Route: 048
     Dates: start: 20080414
  5. LACTULOSE [Concomitant]
     Route: 048
     Dates: start: 20080414
  6. ALFACALCIDOL [Concomitant]
     Route: 048
     Dates: start: 20081021
  7. IRON [Concomitant]
     Route: 042
     Dates: start: 20081218
  8. CALCIUM CARBONATE [Concomitant]
     Route: 048
     Dates: start: 20090113
  9. EPOGEN [Concomitant]
     Route: 058
     Dates: start: 20090113
  10. ALUMINUM HYDROXIDE GEL [Concomitant]
  11. FLOXACILLIN SODIUM [Concomitant]
  12. NYSTATIN [Concomitant]
  13. POLYSACCHARIDE-IRON COMPLEX [Concomitant]
  14. ALBUTEROL [Concomitant]
  15. ERYTHROPOIETIN HUMAN [Concomitant]

REACTIONS (4)
  - BLOOD PRESSURE INCREASED [None]
  - DEPRESSED LEVEL OF CONSCIOUSNESS [None]
  - HAEMORRHAGE INTRACRANIAL [None]
  - VOMITING [None]
